FAERS Safety Report 11193337 (Version 1)
Quarter: 2015Q2

REPORT INFORMATION
  Report Type: Spontaneous
  Country: US (occurrence: None)
  Receive Date: 20150615
  Receipt Date: 20150615
  Transmission Date: 20150821
  Serious: Yes (Life-Threatening)
  Sender: FDA-Public Use
  Company Number: None

PATIENT
  Age: 68 Year
  Sex: Female
  Weight: 45.36 kg

DRUGS (8)
  1. CITALOPRAM [Suspect]
     Active Substance: CITALOPRAM HYDROBROMIDE
     Indication: PSYCHOMOTOR HYPERACTIVITY
     Dosage: 10MG, 1 PILL, ONCE DAILY, BY MOUTH
     Route: 048
     Dates: start: 20150428, end: 20150429
  2. NON CAFFEINE HERBAL TEAS [Concomitant]
  3. CALCIUM [Suspect]
     Active Substance: CALCIUM
  4. CITALOPRAM [Suspect]
     Active Substance: CITALOPRAM HYDROBROMIDE
     Indication: DEPRESSION
     Dosage: 10MG, 1 PILL, ONCE DAILY, BY MOUTH
     Route: 048
     Dates: start: 20150428, end: 20150429
  5. LEVOTHYROXINE [Concomitant]
     Active Substance: LEVOTHYROXINE
  6. ALPRAZOLAM. [Concomitant]
     Active Substance: ALPRAZOLAM
  7. MOTRIN [Suspect]
     Active Substance: IBUPROFEN
  8. MAGNESIUM [Suspect]
     Active Substance: MAGNESIUM

REACTIONS (10)
  - Diarrhoea [None]
  - Fatigue [None]
  - Dysgeusia [None]
  - Psychomotor hyperactivity [None]
  - Disturbance in attention [None]
  - Disorientation [None]
  - Heart rate abnormal [None]
  - Feeling abnormal [None]
  - Insomnia [None]
  - Formication [None]

NARRATIVE: CASE EVENT DATE: 20150428
